FAERS Safety Report 12776949 (Version 1)
Quarter: 2016Q3

REPORT INFORMATION
  Report Type: Spontaneous
  Country: US (occurrence: US)
  Receive Date: 20160923
  Receipt Date: 20160923
  Transmission Date: 20161109
  Serious: No
  Sender: FDA-Public Use
  Company Number: US-ELI_LILLY_AND_COMPANY-US201609007437

PATIENT
  Age: 52 Year
  Sex: Male

DRUGS (19)
  1. INSULIN LISPRO [Suspect]
     Active Substance: INSULIN LISPRO
     Dosage: 12 U, QID
     Route: 065
  2. LEVEMIR [Concomitant]
     Active Substance: INSULIN DETEMIR
  3. AMITIZA [Concomitant]
     Active Substance: LUBIPROSTONE
  4. INSULIN LISPRO [Suspect]
     Active Substance: INSULIN LISPRO
     Dosage: 12 U, QID
     Route: 065
  5. SIMVASTATIN. [Concomitant]
     Active Substance: SIMVASTATIN
  6. TIZANIDINE. [Concomitant]
     Active Substance: TIZANIDINE
  7. OMEPRAZOLE. [Concomitant]
     Active Substance: OMEPRAZOLE
  8. AMLODIPINE BESYLATE. [Concomitant]
     Active Substance: AMLODIPINE BESYLATE
  9. ANDROGEL [Concomitant]
     Active Substance: TESTOSTERONE
  10. HALOPERIDOL. [Concomitant]
     Active Substance: HALOPERIDOL
  11. ZOLPIDEM TARTRATE. [Concomitant]
     Active Substance: ZOLPIDEM TARTRATE
  12. VITAMIN D [Concomitant]
     Active Substance: CHOLECALCIFEROL
  13. MORBIC [Concomitant]
  14. MIRTAZAPINE. [Concomitant]
     Active Substance: MIRTAZAPINE
  15. MISOPROSTOL. [Concomitant]
     Active Substance: MISOPROSTOL
  16. INSULIN LISPRO [Suspect]
     Active Substance: INSULIN LISPRO
     Indication: TYPE 2 DIABETES MELLITUS
     Dosage: 12 U, QID
     Route: 065
  17. BENZTROPINE [Concomitant]
     Active Substance: BENZTROPINE
  18. CLONAZEPAM. [Concomitant]
     Active Substance: CLONAZEPAM
  19. VALSARTAN. [Concomitant]
     Active Substance: VALSARTAN

REACTIONS (5)
  - Visual impairment [Not Recovered/Not Resolved]
  - Incorrect dose administered [Unknown]
  - Drug dose omission [Unknown]
  - Dizziness [Unknown]
  - Blood glucose increased [Unknown]

NARRATIVE: CASE EVENT DATE: 2014
